FAERS Safety Report 25989119 (Version 1)
Quarter: 2025Q4

REPORT INFORMATION
  Report Type: Report from Study
  Country: US (occurrence: US)
  Receive Date: 20251103
  Receipt Date: 20251103
  Transmission Date: 20260117
  Serious: Yes (Hospitalization, Other)
  Sender: SUNOVION
  Company Number: US-SUMITOMO PHARMA SWITZERLAND GMBH-2024SPA000695

PATIENT
  Age: 87 Year
  Sex: Male

DRUGS (47)
  1. ORGOVYX [Suspect]
     Active Substance: RELUGOLIX
     Indication: Prostate cancer
     Dosage: 360 MG, SINGLE
     Route: 048
     Dates: start: 20230427, end: 20230427
  2. ORGOVYX [Suspect]
     Active Substance: RELUGOLIX
     Dosage: 120 MG, QD
     Route: 048
     Dates: start: 20230428
  3. ACETAMINOPHEN [Concomitant]
     Active Substance: ACETAMINOPHEN
     Route: 048
  4. ALBUTEROL SULFATE [Concomitant]
     Active Substance: ALBUTEROL SULFATE
     Dosage: UNK
  5. CARVEDILOL [Concomitant]
     Active Substance: CARVEDILOL
     Dosage: 3.125 MG
     Route: 048
  6. CEFEPIME [Concomitant]
     Active Substance: CEFEPIME HYDROCHLORIDE
     Dosage: UNK
  7. ENTRESTO [Concomitant]
     Active Substance: SACUBITRIL\VALSARTAN
     Dosage: 49-51 MG
     Route: 048
  8. ERLEADA [Concomitant]
     Active Substance: APALUTAMIDE
     Dosage: 60 MG
     Route: 048
  9. ESCITALOPRAM OXALATE [Concomitant]
     Active Substance: ESCITALOPRAM OXALATE
     Dosage: 10
     Route: 048
  10. FAMOTIDINE [Concomitant]
     Active Substance: FAMOTIDINE
     Dosage: 40 MG
     Route: 048
  11. HYDROCODONE BITARTRATE AND ACETAMINOPHEN [Concomitant]
     Active Substance: ACETAMINOPHEN\HYDROCODONE BITARTRATE
     Dosage: UNK
     Route: 048
  12. MYRBETRIQ [Concomitant]
     Active Substance: MIRABEGRON
     Dosage: UNK
     Route: 048
  13. ONDANSETRON [Concomitant]
     Active Substance: ONDANSETRON
     Dosage: UNK
  14. PREDNISONE [Concomitant]
     Active Substance: PREDNISONE
     Dosage: 5 MG
     Route: 048
  15. ROSUVASTATIN CALCIUM [Concomitant]
     Active Substance: ROSUVASTATIN CALCIUM
     Dosage: 10
     Route: 048
  16. SELENIUM [Concomitant]
     Active Substance: SELENIUM
     Dosage: 100 ?G
     Route: 048
  17. VALACYCLOVIR HYDROCHLORIDE [Concomitant]
     Active Substance: VALACYCLOVIR HYDROCHLORIDE
     Dosage: 500 MG
     Route: 048
  18. TYLENOL [Concomitant]
     Active Substance: ACETAMINOPHEN
     Dosage: UNK
  19. Bio 35 [Concomitant]
  20. BIOTIN [Concomitant]
     Active Substance: BIOTIN
  21. CHROMIUM [Concomitant]
     Active Substance: CHROMIC CHLORIDE\CHROMIUM
  22. COLLOIDAL SILVER [Concomitant]
     Active Substance: SILVER
  23. COPPER [Concomitant]
     Active Substance: COPPER
  24. CRANBERRY [Concomitant]
     Active Substance: CRANBERRY
  25. Glucosamine + chondroitin [Concomitant]
  26. FUROSEMIDE [Concomitant]
     Active Substance: FUROSEMIDE
  27. NORCO [Concomitant]
     Active Substance: ACETAMINOPHEN\HYDROCODONE BITARTRATE
  28. IODINE [Concomitant]
     Active Substance: IODINE
  29. ALBUTEROL\IPRATROPIUM [Concomitant]
     Active Substance: ALBUTEROL\IPRATROPIUM
  30. Macular support [Concomitant]
  31. MAGNESIUM [Concomitant]
     Active Substance: MAGNESIUM
  32. VITAMINS [Concomitant]
     Active Substance: VITAMINS
  33. MANGANESE [Concomitant]
     Active Substance: MANGANESE CHLORIDE
  34. MOLYBDENUM [Concomitant]
     Active Substance: MOLYBDENUM
  35. Omega [Concomitant]
  36. VITAMIN B1 [Concomitant]
     Active Substance: THIAMINE HYDROCHLORIDE
  37. VITAMIN B12 [Concomitant]
     Active Substance: CYANOCOBALAMIN
  38. VITAMIN B2 [Concomitant]
     Active Substance: RIBOFLAVIN
  39. PANTOTHENIC ACID [Concomitant]
     Active Substance: PANTOTHENIC ACID
  40. FOLIC ACID [Concomitant]
     Active Substance: FOLIC ACID
  41. VITAMIN B6 [Concomitant]
     Active Substance: PYRIDOXINE HYDROCHLORIDE
  42. VITAMIN C [Concomitant]
     Active Substance: ASCORBIC ACID
  43. VITAMIN D3 [Concomitant]
     Active Substance: CHOLECALCIFEROL
  44. VITAMIN E [Concomitant]
     Active Substance: .ALPHA.-TOCOPHEROL
  45. VITAMIN K [Concomitant]
     Active Substance: PHYTONADIONE
  46. ZEAXANTHIN [Concomitant]
     Active Substance: ZEAXANTHIN
  47. ZINC [Concomitant]
     Active Substance: ZINC

REACTIONS (2)
  - Pneumonia [Unknown]
  - Product dose omission issue [Recovered/Resolved]
